FAERS Safety Report 4853316-9 (Version None)
Quarter: 2005Q4

REPORT INFORMATION
  Report Type: 
  Country: None (occurrence: None)
  Receive Date: 20051214
  Receipt Date: 20051123
  Transmission Date: 20060501
  Serious: Yes (Other)
  Sender: FDA-Public Use
  Company Number: NL-GLAXOSMITHKLINE-B0401694A

PATIENT
  Age: 64 Year
  Sex: Female

DRUGS (9)
  1. ROPINIROLE HCL [Suspect]
     Indication: PARKINSON'S DISEASE
     Dates: start: 20051108
  2. ENALAPRIL [Suspect]
     Dosage: 10MG PER DAY
  3. INSULIN [Concomitant]
     Dates: start: 20030101
  4. ATENOLOLUM [Concomitant]
  5. METFORMIN [Concomitant]
     Dates: start: 20030101
  6. OXAZEPAM [Concomitant]
     Dosage: 10MG AS REQUIRED
     Dates: start: 20030101
  7. NOZINAN [Concomitant]
     Dosage: 25MG PER DAY
     Dates: start: 20030101
  8. AMARYL [Concomitant]
     Dosage: 4MG PER DAY
  9. FLUOXETINE [Concomitant]
     Dosage: 20MG TWICE PER DAY
     Dates: start: 20030101

REACTIONS (2)
  - ANGIONEUROTIC OEDEMA [None]
  - HYPERSENSITIVITY [None]
